FAERS Safety Report 5769153-7 (Version None)
Quarter: 2008Q2

REPORT INFORMATION
  Report Type: 
  Country: None (occurrence: None)
  Receive Date: 20080610
  Receipt Date: 20080526
  Transmission Date: 20081010
  Serious: Yes (Congenital Anomaly)
  Sender: FDA-Public Use
  Company Number: TNZFR200800056

PATIENT
  Sex: Male
  Weight: 6.8 kg

DRUGS (1)
  1. INNOHEP [Suspect]
     Indication: THROMBOSIS PROPHYLAXIS
     Dosage: (DAILY)
     Dates: start: 20070412, end: 20070427

REACTIONS (2)
  - CONGENITAL RENAL DISORDER [None]
  - MATERNAL DRUGS AFFECTING FOETUS [None]
